FAERS Safety Report 17335866 (Version 1)
Quarter: 2020Q1

REPORT INFORMATION
  Report Type: Spontaneous
  Country: US (occurrence: US)
  Receive Date: 20200128
  Receipt Date: 20200128
  Transmission Date: 20200409
  Serious: Yes (Other)
  Sender: FDA-Public Use
  Company Number: US-009507513-2001USA007352

PATIENT
  Age: 62 Year
  Sex: Male

DRUGS (9)
  1. NORCO [Suspect]
     Active Substance: ACETAMINOPHEN\HYDROCODONE BITARTRATE
     Dosage: UNK
  2. BACLOFEN. [Suspect]
     Active Substance: BACLOFEN
     Indication: CEREBRAL PALSY
     Dosage: WAS DECREASED
     Route: 037
     Dates: start: 201402
  3. BACLOFEN. [Suspect]
     Active Substance: BACLOFEN
     Dosage: UP TO 8%
     Route: 037
  4. BACLOFEN. [Suspect]
     Active Substance: BACLOFEN
     Dosage: UNK
     Route: 037
  5. MORPHINE [Suspect]
     Active Substance: MORPHINE
     Dosage: UNK
     Route: 037
  6. CYMBALTA [Suspect]
     Active Substance: DULOXETINE HYDROCHLORIDE
     Dosage: UNK
  7. REMERON [Suspect]
     Active Substance: MIRTAZAPINE
     Dosage: UNK
  8. BUPIVACAINE. [Suspect]
     Active Substance: BUPIVACAINE
     Dosage: UNK
     Route: 037
  9. SEROQUEL [Suspect]
     Active Substance: QUETIAPINE FUMARATE
     Indication: PSYCHOTIC DISORDER
     Dosage: UNK

REACTIONS (17)
  - Crying [Unknown]
  - Euphoric mood [Unknown]
  - Respiratory depression [Unknown]
  - Suicidal behaviour [Unknown]
  - Memory impairment [Unknown]
  - Depression [Unknown]
  - Tracheal haemorrhage [Unknown]
  - Hypothermia [Unknown]
  - Adverse event [Unknown]
  - Red blood cell count decreased [Unknown]
  - Paranoia [Unknown]
  - Blood pressure increased [Unknown]
  - Delirium [Unknown]
  - Emotional distress [Unknown]
  - Confusional state [Unknown]
  - Somnolence [Unknown]
  - Anxiety [Unknown]

NARRATIVE: CASE EVENT DATE: 20140120
